FAERS Safety Report 10984284 (Version 3)
Quarter: 2015Q3

REPORT INFORMATION
  Report Type: Report from Study
  Country: DE (occurrence: DE)
  Receive Date: 20150403
  Receipt Date: 20150701
  Transmission Date: 20151125
  Serious: Yes (Hospitalization)
  Sender: FDA-Public Use
  Company Number: DE-PFIZER INC-2015074646

PATIENT
  Age: 74 Year
  Sex: Female
  Weight: 85 kg

DRUGS (14)
  1. CISPLATIN. [Concomitant]
     Active Substance: CISPLATIN
     Indication: DIFFUSE LARGE B-CELL LYMPHOMA
     Dosage: 191 MG, UNK
     Dates: start: 20150109
  2. L-THYROXIN [Concomitant]
     Active Substance: LEVOTHYROXINE SODIUM
     Dosage: 100 ?G, UNK
  3. TEMSIROLIMUS [Suspect]
     Active Substance: TEMSIROLIMUS
     Dosage: 25 MG, CYCLIC (ON DAY 1 AND ON DAY 8)
     Dates: start: 20150107, end: 20150226
  4. CARBOPLATIN. [Concomitant]
     Active Substance: CARBOPLATIN
     Indication: DIFFUSE LARGE B-CELL LYMPHOMA
     Dosage: 364.28 MG, UNK
     Dates: start: 20150212, end: 20150212
  5. PANTOZOL [Concomitant]
     Active Substance: PANTOPRAZOLE SODIUM
     Dosage: 40 MG, DAILY
     Dates: start: 20141219
  6. METOPROLOL [Concomitant]
     Active Substance: METOPROLOL
     Dosage: 25 MG, DAILY
  7. ENAPRIL [Interacting]
     Active Substance: ENALAPRIL
     Dosage: 10 MG, DAILY
  8. BELOC ZOK [Concomitant]
     Active Substance: METOPROLOL SUCCINATE
     Dosage: 47.5 MG, UNK
     Dates: start: 20150116
  9. ALLOPURINOL. [Concomitant]
     Active Substance: ALLOPURINOL
     Dosage: 300 MG, DAILY
     Dates: start: 20141219
  10. RITUXIMAB [Concomitant]
     Active Substance: RITUXIMAB
     Indication: DIFFUSE LARGE B-CELL LYMPHOMA
     Dosage: 720 MG, UNK
     Dates: start: 20150108
  11. CYTARABINE. [Concomitant]
     Active Substance: CYTARABINE
     Indication: DIFFUSE LARGE B-CELL LYMPHOMA
     Dosage: 3820 MG, UNK
     Dates: start: 20150110
  12. AMLODIPIN [Concomitant]
     Active Substance: AMLODIPINE BESYLATE
     Dosage: 10 MG, DAILY
     Dates: start: 20150114
  13. CLEXANE [Concomitant]
     Active Substance: ENOXAPARIN SODIUM
     Dosage: 80 - 160 MG, DAILY,AS NEEDED
     Dates: start: 20150116
  14. DEXAMETHASONE. [Concomitant]
     Active Substance: DEXAMETHASONE
     Indication: DIFFUSE LARGE B-CELL LYMPHOMA
     Dosage: 40 MG, UNK
     Dates: start: 20150109

REACTIONS (3)
  - Angioedema [Recovered/Resolved]
  - Drug interaction [Recovered/Resolved]
  - Mouth haemorrhage [Recovered/Resolved]

NARRATIVE: CASE EVENT DATE: 20150226
